FAERS Safety Report 8163503-2 (Version None)
Quarter: 2012Q1

REPORT INFORMATION
  Report Type: 
  Country: None (occurrence: None)
  Receive Date: 20120224
  Receipt Date: 20120214
  Transmission Date: 20120608
  Serious: Yes (Hospitalization, Disabling)
  Sender: FDA-Public Use
  Company Number: US-MERCK-1111USA01297

PATIENT
  Age: 55 Year
  Sex: Male

DRUGS (14)
  1. NEXIUM [Concomitant]
     Route: 065
     Dates: start: 19970101, end: 20000101
  2. FOSAMAX [Suspect]
     Route: 048
     Dates: start: 20010425, end: 20080530
  3. VITAMIN D (UNSPECIFIED) [Concomitant]
     Route: 065
     Dates: start: 19900101
  4. CALCIUM (UNSPECIFIED) [Concomitant]
     Route: 065
     Dates: start: 19900101
  5. FOSAMAX [Suspect]
     Indication: OSTEOPENIA
     Route: 048
     Dates: start: 19960901, end: 20010401
  6. NEXIUM [Concomitant]
     Route: 065
  7. PREDNISONE [Concomitant]
     Indication: VASCULITIS
     Route: 065
     Dates: start: 19780101
  8. FOSAMAX [Suspect]
     Indication: OSTEOPOROSIS
     Route: 048
     Dates: start: 19960901, end: 20010401
  9. VITAMIN E [Concomitant]
     Route: 065
     Dates: start: 19900101
  10. TOPROL-XL [Concomitant]
     Indication: ARRHYTHMIA
     Route: 065
     Dates: start: 19950101
  11. ALENDRONATE SODIUM [Suspect]
     Indication: OSTEOPENIA
     Route: 065
     Dates: start: 20080601, end: 20090130
  12. FORTEO [Suspect]
     Route: 048
     Dates: start: 20090601
  13. ZOCOR [Concomitant]
     Indication: BLOOD CHOLESTEROL INCREASED
     Route: 065
     Dates: start: 19950101, end: 20110701
  14. FOSAMAX [Suspect]
     Route: 048
     Dates: start: 20010425, end: 20080530

REACTIONS (24)
  - LOW TURNOVER OSTEOPATHY [None]
  - ARTHRITIS [None]
  - STRESS FRACTURE [None]
  - PAIN [None]
  - INGUINAL HERNIA [None]
  - INFECTION [None]
  - FALL [None]
  - LIGAMENT SPRAIN [None]
  - SCOLIOSIS [None]
  - PAIN IN EXTREMITY [None]
  - MYOFASCIAL PAIN SYNDROME [None]
  - FEMUR FRACTURE [None]
  - BACK PAIN [None]
  - LUMBAR RADICULOPATHY [None]
  - CARDIAC DISORDER [None]
  - GASTROOESOPHAGEAL REFLUX DISEASE [None]
  - BLOOD CHOLESTEROL INCREASED [None]
  - DEPRESSION [None]
  - CATARACT NUCLEAR [None]
  - FOOT FRACTURE [None]
  - NEURALGIA [None]
  - ARRHYTHMIA [None]
  - MUSCULOSKELETAL DISCOMFORT [None]
  - ERECTILE DYSFUNCTION [None]
